FAERS Safety Report 7575181-1 (Version None)
Quarter: 2011Q2

REPORT INFORMATION
  Report Type: 
  Country: None (occurrence: None)
  Receive Date: 20110627
  Receipt Date: 20110616
  Transmission Date: 20111010
  Serious: Yes (Hospitalization)
  Sender: FDA-Public Use
  Company Number: JP-UCBSA-015495

PATIENT
  Sex: Female
  Weight: 47.8 kg

DRUGS (35)
  1. CERTOLIZUMAB PEGOL [Suspect]
     Indication: RHEUMATOID ARTHRITIS
     Route: 058
     Dates: start: 20091210, end: 20100707
  2. SODIUM RISEDRONATE HYDRATE [Concomitant]
     Dosage: ONE POINT SUSPENSION OF THE ADMINISTRATION
     Dates: start: 20081020
  3. LOXOPROFEN SODIUM [Concomitant]
     Dosage: ADEQUATE DOSE
     Dates: start: 20100414
  4. ISONIAZID [Concomitant]
     Dates: start: 20090803
  5. ATORVASTATIN CALCIUM [Concomitant]
     Dates: start: 20100203
  6. FAMOTIDINE [Concomitant]
     Dates: start: 20110427
  7. THEOPHYLLINE [Concomitant]
     Dates: start: 20060101
  8. DIFLUCORTOLONE VALERATE [Concomitant]
     Dosage: ADEQUATE DOSE
     Dates: start: 20100617, end: 20100625
  9. LIRANAFTATE [Concomitant]
     Dosage: ADEQUATE DOSE
     Dates: start: 20100823
  10. SULFAMETHOXAZOLE AND TRIMETHOPRIM [Concomitant]
     Dosage: 4 TABLETS A WEEK
     Dates: start: 20110302
  11. SULFASALAZINE [Concomitant]
     Dosage: ONE-POINT SUSPENSION OF THE ADMINISTRATION
     Dates: start: 20081020
  12. SULFASALAZINE [Concomitant]
     Dates: start: 20110502
  13. FAMOTIDINE [Concomitant]
     Dates: start: 20081020
  14. CERTOLIZUMAB PEGOL [Suspect]
     Route: 058
     Dates: start: 20090825, end: 20091202
  15. PREDNISOLONE [Concomitant]
     Dates: start: 20060613
  16. THEOPHYLLINE [Concomitant]
     Dates: start: 20110427
  17. TERBINAFINE HYDROCHLORIDE [Concomitant]
     Dates: start: 20101111
  18. CERTOLIZUMAB PEGOL [Suspect]
     Route: 058
     Dates: end: 20110413
  19. CERTOLIZUMAB PEGOL [Suspect]
     Route: 058
     Dates: start: 20110608
  20. ATORVASTATIN CALCIUM [Concomitant]
     Dates: start: 20110427
  21. SENNOSIDE [Concomitant]
     Dates: start: 20110302
  22. PREDNISOLONE [Concomitant]
     Dates: start: 20100527, end: 20100721
  23. PREDNISOLONE [Concomitant]
     Dates: start: 20110427
  24. ISONIAZID [Concomitant]
     Dates: start: 20110427
  25. SENNOSIDE [Concomitant]
     Dates: start: 20060613
  26. AMPHOTERICIN B [Concomitant]
     Dates: start: 20110427
  27. AURANOFIN [Concomitant]
     Dates: start: 20070402, end: 20101012
  28. SODIUM AZULENE SULFONATE L-GLUTAMINE [Concomitant]
     Dates: start: 20060613
  29. SODIUM AZULENE SULFONATE L-GLUTAMINE [Concomitant]
     Dates: start: 20110427
  30. OLOPATADINE HYDROCHLORIDE [Concomitant]
     Dates: start: 20100617, end: 20100625
  31. AMPHOTERICIN B [Concomitant]
     Dates: start: 20100623
  32. VIDARABINE [Concomitant]
     Dosage: ADEQUATE DOSE
     Dates: start: 20100804
  33. LIRANAFTATE [Concomitant]
     Dosage: ADEQUATE DOSE
     Dates: start: 20110330
  34. DIFLUCORTOLONE VALERATE [Concomitant]
     Dosage: ADEQUATE DOSE
     Dates: start: 20110330
  35. BUCILLAMINE [Concomitant]
     Dates: start: 20070625, end: 20100803

REACTIONS (2)
  - DIZZINESS [None]
  - DERMAL CYST [None]
